FAERS Safety Report 23262274 (Version 1)
Quarter: 2023Q4

REPORT INFORMATION
  Report Type: Spontaneous
  Country: AU (occurrence: AU)
  Receive Date: 20231205
  Receipt Date: 20231205
  Transmission Date: 20240110
  Serious: Yes (Other)
  Sender: FDA-Public Use
  Company Number: AU-MYLANLABS-2023M1128329

PATIENT
  Age: 70 Year
  Sex: Female

DRUGS (2)
  1. CELECOXIB [Suspect]
     Active Substance: CELECOXIB
     Indication: Product used for unknown indication
     Dosage: UNK
     Route: 065
  2. TAMOXIFEN [Suspect]
     Active Substance: TAMOXIFEN
     Indication: Uveitis
     Dosage: UNK
     Route: 065

REACTIONS (4)
  - Pancreatic failure [Unknown]
  - Desmoid tumour [Unknown]
  - Tumour compression [Unknown]
  - Product use in unapproved indication [Unknown]
